FAERS Safety Report 4788066-0 (Version None)
Quarter: 2005Q4

REPORT INFORMATION
  Report Type: 
  Country: None (occurrence: None)
  Receive Date: 20051004
  Receipt Date: 20051004
  Transmission Date: 20060501
  Serious: Yes (Life-Threatening, Hospitalization)
  Sender: FDA-Public Use
  Company Number: None

PATIENT
  Age: 55 Year
  Sex: Female
  Weight: 76.6579 kg

DRUGS (17)
  1. DAUNORUBICIN HCL [Suspect]
     Indication: ACUTE LYMPHOCYTIC LEUKAEMIA
     Dosage: 108MG IV WEEKLY
     Route: 042
     Dates: start: 20050913
  2. DAUNORUBICIN HCL [Suspect]
     Indication: ACUTE LYMPHOCYTIC LEUKAEMIA
     Dosage: 108MG IV WEEKLY
     Route: 042
     Dates: start: 20050920
  3. DAUNORUBICIN HCL [Suspect]
     Indication: ACUTE LYMPHOCYTIC LEUKAEMIA
     Dosage: 108MG IV WEEKLY
     Route: 042
     Dates: start: 20050927
  4. L-ASPARAGINASE 10,000IU [Suspect]
     Indication: ACUTE LYMPHOCYTIC LEUKAEMIA
     Dosage: 10,000IU IV
     Route: 042
     Dates: start: 20050929
  5. L-ASPARAGINASE 10,000IU [Suspect]
     Indication: ACUTE LYMPHOCYTIC LEUKAEMIA
     Dosage: 10,000IU IV
     Route: 042
     Dates: start: 20050930
  6. ACYCLOVIR [Concomitant]
  7. FAMOTIDINE [Concomitant]
  8. FENTANYL [Concomitant]
  9. MEROPENEM [Concomitant]
  10. SOLU-MEDROL [Concomitant]
  11. VANCOMYCIN [Concomitant]
  12. REGULAR INSULIN [Concomitant]
  13. MORPHINE [Concomitant]
  14. TYLENOL (CAPLET) [Concomitant]
  15. PHENERGAN [Concomitant]
  16. CASPOFUNGIN [Concomitant]
  17. AMIKACIN [Concomitant]

REACTIONS (7)
  - ATRIAL FIBRILLATION [None]
  - BODY TEMPERATURE INCREASED [None]
  - CONSTIPATION [None]
  - HYPOTENSION [None]
  - ILEUS [None]
  - NEUTROPENIA [None]
  - VENTRICULAR EXTRASYSTOLES [None]
